FAERS Safety Report 8977952 (Version 1)
Quarter: 2012Q4

REPORT INFORMATION
  Report Type: Report from Study
  Country: CA (occurrence: CA)
  Receive Date: 20121220
  Receipt Date: 20121220
  Transmission Date: 20130627
  Serious: Yes (Other)
  Sender: FDA-Public Use
  Company Number: CA-ROCHE-1171741

PATIENT
  Sex: Male
  Weight: 79 kg

DRUGS (2)
  1. OMALIZUMAB [Suspect]
     Indication: ASTHMA
     Route: 058
     Dates: start: 20080326
  2. OMALIZUMAB [Suspect]
     Route: 058
     Dates: start: 20080407

REACTIONS (6)
  - Back disorder [Unknown]
  - Pain [Recovering/Resolving]
  - Sciatica [Unknown]
  - Nasopharyngitis [Unknown]
  - Dyspnoea exertional [Unknown]
  - Wheezing [Unknown]
